FAERS Safety Report 24019808 (Version 1)
Quarter: 2024Q2

REPORT INFORMATION
  Report Type: Spontaneous
  Country: US (occurrence: None)
  Receive Date: 20240627
  Receipt Date: 20240627
  Transmission Date: 20240716
  Serious: No
  Sender: FDA-Public Use
  Company Number: None

PATIENT
  Sex: Female

DRUGS (5)
  1. BALVERSA [Suspect]
     Active Substance: ERDAFITINIB
     Indication: Bladder cancer
     Dosage: FREQUENCY : DAILY;?
     Route: 048
  2. OXYCODONE [Concomitant]
  3. FENTANYL [Concomitant]
     Active Substance: FENTANYL\FENTANYL CITRATE
  4. ELIQUIS [Concomitant]
     Active Substance: APIXABAN
  5. TYLENOL [Concomitant]

REACTIONS (5)
  - Diarrhoea [None]
  - Vomiting [None]
  - Pain in extremity [None]
  - Decreased appetite [None]
  - Weight decreased [None]
